FAERS Safety Report 10269537 (Version 3)
Quarter: 2014Q3

REPORT INFORMATION
  Report Type: Report from Study
  Country: US (occurrence: US)
  Receive Date: 20140701
  Receipt Date: 20140711
  Transmission Date: 20150326
  Serious: Yes (Death, Hospitalization, Other)
  Sender: FDA-Public Use
  Company Number: US-BRISTOL-MYERS SQUIBB COMPANY-20332383

PATIENT
  Age: 41 Year
  Sex: Male
  Weight: 79.2 kg

DRUGS (15)
  1. PRAVACHOL [Concomitant]
     Active Substance: PRAVASTATIN SODIUM
  2. LACTULOSE. [Concomitant]
     Active Substance: LACTULOSE
  3. NEXIUM [Concomitant]
     Active Substance: ESOMEPRAZOLE MAGNESIUM
  4. GABAPENTIN. [Concomitant]
     Active Substance: GABAPENTIN
  5. ACYCLOVIR. [Concomitant]
     Active Substance: ACYCLOVIR
  6. BACLOFEN. [Concomitant]
     Active Substance: BACLOFEN
  7. ZYPREX [Concomitant]
  8. LISINOPRIL. [Concomitant]
     Active Substance: LISINOPRIL
  9. MAGNESIUM [Concomitant]
     Active Substance: MAGNESIUM
  10. XOPENEX [Concomitant]
     Active Substance: LEVALBUTEROL HYDROCHLORIDE
  11. RITUXIMAB [Suspect]
     Active Substance: RITUXIMAB
     Indication: LYMPHOMA
     Dosage: LAST DOSE 06FEB2014?TOTAL DOSE:750MG
     Dates: start: 20140124
  12. IPILIMUMAB [Suspect]
     Active Substance: IPILIMUMAB
     Indication: LYMPHOMA
     Dosage: LAST DOSE:02/06/2014?TOTAL DOSE:245MG
     Route: 042
     Dates: start: 20140124
  13. SENNA [Concomitant]
     Active Substance: SENNA LEAF\SENNOSIDES\SENNOSIDES A AND B
  14. DITROPAN XL [Concomitant]
     Active Substance: OXYBUTYNIN CHLORIDE
  15. LEXAPRO [Concomitant]
     Active Substance: ESCITALOPRAM OXALATE

REACTIONS (9)
  - Dyspnoea [Recovered/Resolved]
  - Neck pain [Unknown]
  - Malignant neoplasm progression [Fatal]
  - Tumour lysis syndrome [Unknown]
  - Agitation [Unknown]
  - Hyperuricaemia [Recovered/Resolved]
  - Back pain [Unknown]
  - Pleural effusion [Not Recovered/Not Resolved]
  - Hypophosphataemia [Unknown]

NARRATIVE: CASE EVENT DATE: 201402
